FAERS Safety Report 8142089-2 (Version None)
Quarter: 2012Q1

REPORT INFORMATION
  Report Type: 
  Country: None (occurrence: None)
  Receive Date: 20120216
  Receipt Date: 20120203
  Transmission Date: 20120608
  Serious: Yes (Hospitalization)
  Sender: FDA-Public Use
  Company Number: US-ACTELION-A-NJ2012-59212

PATIENT

DRUGS (14)
  1. EPOPROSTENOL SODIUM [Suspect]
     Indication: PULMONARY ARTERIAL HYPERTENSION
     Dosage: 27.5 NG/KG, PER MIN
     Route: 041
     Dates: start: 20110302
  2. ALLEGRA [Concomitant]
  3. GABAPENTIN [Concomitant]
  4. NOVOLOG [Concomitant]
  5. TRAMADOL HCL [Concomitant]
     Dosage: UNK
  6. SPIRONOLACTONE [Concomitant]
  7. ZANTAC [Concomitant]
  8. DIGOXIN [Concomitant]
  9. ALBUTEROL [Concomitant]
  10. LANTUS [Concomitant]
  11. CLONAZEPAM [Concomitant]
  12. COUMADIN [Concomitant]
  13. ADVAIR DISKUS 100/50 [Concomitant]
  14. CRESTOR [Concomitant]

REACTIONS (3)
  - ATRIAL FIBRILLATION [None]
  - PALPITATIONS [None]
  - DYSPNOEA [None]
